FAERS Safety Report 20739692 (Version 1)
Quarter: 2022Q2

REPORT INFORMATION
  Report Type: Spontaneous
  Country: IN (occurrence: IN)
  Receive Date: 20220422
  Receipt Date: 20220422
  Transmission Date: 20220721
  Serious: Yes (Hospitalization, Other)
  Sender: FDA-Public Use
  Company Number: IN-GLAXOSMITHKLINE-INCH2022GSK014463

PATIENT
  Age: 30 Year
  Sex: Female

DRUGS (1)
  1. IBUPROFEN [Suspect]
     Active Substance: IBUPROFEN
     Indication: Arthralgia
     Dosage: UNK

REACTIONS (15)
  - Stevens-Johnson syndrome [Recovered/Resolved]
  - Cholestasis [Recovered/Resolved]
  - Pancytopenia [Recovered/Resolved]
  - Rash [Recovered/Resolved]
  - Lip erosion [Recovered/Resolved]
  - Oral mucosa erosion [Recovered/Resolved]
  - Skin erosion [Recovered/Resolved]
  - Skin lesion [Recovered/Resolved]
  - Hepatomegaly [Recovered/Resolved]
  - Hepatic function abnormal [Recovered/Resolved]
  - Blister [Recovered/Resolved]
  - Oral mucosal blistering [Recovered/Resolved]
  - Macule [Unknown]
  - Purpura [Unknown]
  - Gout [Unknown]
